FAERS Safety Report 9677516 (Version 2)
Quarter: 2014Q1

REPORT INFORMATION
  Report Type: Report from Study
  Country: US (occurrence: US)
  Receive Date: 20131108
  Receipt Date: 20140220
  Transmission Date: 20141002
  Serious: Yes (Death, Other)
  Sender: FDA-Public Use
  Company Number: PHEH2013US023380

PATIENT
  Age: 78 Year
  Sex: Male

DRUGS (1)
  1. GLEEVEC [Suspect]
     Dosage: 400 MG, DAILY
     Route: 048
     Dates: start: 20130618, end: 20130807

REACTIONS (5)
  - Sepsis [Fatal]
  - Pneumonia aspiration [Fatal]
  - Aspiration [Fatal]
  - Rectal haemorrhage [Unknown]
  - Haematemesis [Unknown]
